FAERS Safety Report 7771393-2 (Version None)
Quarter: 2011Q3

REPORT INFORMATION
  Report Type: 
  Country: None (occurrence: None)
  Receive Date: 20110922
  Receipt Date: 20110912
  Transmission Date: 20111222
  Serious: No
  Sender: FDA-Public Use
  Company Number: US-B.I. PHARMACEUTICALS,INC./RIDGEFIELD-2011-BP-22060BP

PATIENT
  Age: 84 Year
  Sex: Female

DRUGS (6)
  1. SOTALOL HCL [Concomitant]
     Indication: CARDIAC DISORDER
     Route: 048
  2. PRADAXA [Suspect]
     Indication: ATRIAL FIBRILLATION
     Dosage: 300 MG
     Route: 048
     Dates: start: 20110909
  3. SYNTHROID [Concomitant]
     Indication: THYROIDECTOMY
     Route: 048
  4. ASPIRIN [Concomitant]
     Route: 048
  5. DIGOXIN [Concomitant]
     Indication: CARDIAC DISORDER
     Route: 048
  6. CRESTOR [Concomitant]
     Indication: BLOOD CHOLESTEROL INCREASED
     Route: 048

REACTIONS (1)
  - SLEEP DISORDER [None]
